FAERS Safety Report 22533349 (Version 1)
Quarter: 2023Q2

REPORT INFORMATION
  Report Type: Spontaneous
  Country: US (occurrence: None)
  Receive Date: 20230608
  Receipt Date: 20230608
  Transmission Date: 20230722
  Serious: Yes (Other)
  Sender: FDA-Public Use
  Company Number: US-MAIA Pharmaceuticals, Inc.-MAI202305-000027

PATIENT
  Age: 10 Year
  Sex: Male

DRUGS (2)
  1. BIVALIRUDIN [Suspect]
     Active Substance: BIVALIRUDIN
     Indication: Anticoagulant therapy
     Dosage: UNKNOWN
     Route: 041
  2. HEPARIN [Suspect]
     Active Substance: HEPARIN SODIUM
     Indication: Anticoagulant therapy
     Dosage: UNKNOWN
     Route: 065

REACTIONS (4)
  - Brain oedema [Recovering/Resolving]
  - Condition aggravated [Recovering/Resolving]
  - Subdural haematoma [Recovered/Resolved]
  - Product use in unapproved indication [Unknown]
